FAERS Safety Report 8277164-5 (Version None)
Quarter: 2012Q2

REPORT INFORMATION
  Report Type: 
  Country: None (occurrence: None)
  Receive Date: 20120412
  Receipt Date: 20120403
  Transmission Date: 20120825
  Serious: Yes (Disabling)
  Sender: FDA-Public Use
  Company Number: US-ASTRAZENECA-2012SE21950

PATIENT
  Age: 57 Year
  Sex: Male
  Weight: 70.3 kg

DRUGS (9)
  1. PROAIR HFA [Concomitant]
     Dosage: PRN
  2. INSULIN [Concomitant]
     Dosage: 20 UNITS PER SHOT BID
  3. GABAPENTIN [Concomitant]
  4. OMEPRAZOLE [Suspect]
     Route: 048
  5. CRESTOR [Suspect]
     Indication: BLOOD CHOLESTEROL ABNORMAL
     Route: 048
  6. TERAZOSIN HCL [Concomitant]
  7. CARBAMAZEPINE [Concomitant]
  8. MAXALT [Concomitant]
  9. ASPIRIN [Concomitant]

REACTIONS (6)
  - CHRONIC OBSTRUCTIVE PULMONARY DISEASE [None]
  - ASTHMA [None]
  - LOSS OF CONSCIOUSNESS [None]
  - CONVULSION [None]
  - DIABETES MELLITUS INADEQUATE CONTROL [None]
  - MIGRAINE [None]
